FAERS Safety Report 20959185 (Version 2)
Quarter: 2022Q2

REPORT INFORMATION
  Report Type: Report from Study
  Country: UY (occurrence: UY)
  Receive Date: 20220614
  Receipt Date: 20220628
  Transmission Date: 20220720
  Serious: Yes (Life-Threatening, Hospitalization, Other)
  Sender: FDA-Public Use
  Company Number: UY-ABBVIE-22K-168-4432854-00

PATIENT
  Age: 60 Year
  Sex: Female

DRUGS (1)
  1. UPADACITINIB [Suspect]
     Active Substance: UPADACITINIB
     Indication: Rheumatoid arthritis
     Route: 048
     Dates: start: 20211018

REACTIONS (5)
  - Cerebrovascular accident [Recovering/Resolving]
  - Asthenia [Recovered/Resolved]
  - Vomiting [Not Recovered/Not Resolved]
  - Decreased appetite [Unknown]
  - Asthma [Recovering/Resolving]

NARRATIVE: CASE EVENT DATE: 20220609
